FAERS Safety Report 4311380-X (Version None)
Quarter: 2004Q1

REPORT INFORMATION
  Report Type: 
  Country: None (occurrence: None)
  Receive Date: 20040302
  Receipt Date: 20040121
  Transmission Date: 20041129
  Serious: No
  Sender: FDA-Public Use
  Company Number: 200327192BWH

PATIENT
  Age: 75 Year
  Sex: Male
  Weight: 95.2554 kg

DRUGS (16)
  1. LEVITRA [Suspect]
     Indication: ERECTILE DYSFUNCTION
     Dosage: 10 MG, QD, ORAL
     Route: 048
     Dates: start: 20031022
  2. LEVITRA [Suspect]
     Indication: ERECTILE DYSFUNCTION
     Dosage: 10 MG, QD, ORAL
     Route: 048
     Dates: start: 20031023
  3. LEVITRA [Suspect]
     Indication: ERECTILE DYSFUNCTION
     Dosage: 10 MG, QD, ORAL
     Route: 048
     Dates: start: 20031024
  4. LEVITRA [Suspect]
     Indication: ERECTILE DYSFUNCTION
     Dosage: 10 MG, QD, ORAL
     Route: 048
     Dates: start: 20031025
  5. OLANZAPINE [Concomitant]
  6. SENOKOT [Concomitant]
  7. LISINOPRIL [Concomitant]
  8. HYDROCHLOROTHIAZIDE [Concomitant]
  9. METFORMIN HCL [Concomitant]
  10. LORAZEPAM [Concomitant]
  11. ASPIRIN [Concomitant]
  12. GLYBURIDE [Concomitant]
  13. FELODIPINE [Concomitant]
  14. LEVOTHYROXINE SODIUM [Concomitant]
  15. ADVAIR DISKUS 100/50 [Concomitant]
  16. SINGULAIR [Concomitant]

REACTIONS (1)
  - ERECTILE DYSFUNCTION [None]
